FAERS Safety Report 5109901-2 (Version None)
Quarter: 2006Q3

REPORT INFORMATION
  Report Type: 
  Country: None (occurrence: None)
  Receive Date: 20060921
  Receipt Date: 20060419
  Transmission Date: 20061208
  Serious: Yes (Life-Threatening)
  Sender: FDA-Public Use
  Company Number: TN-AVENTIS-200614183GDDC

PATIENT
  Age: 65 Year
  Sex: Male
  Weight: 68 kg

DRUGS (8)
  1. KETEK [Suspect]
     Route: 048
     Dates: start: 20050324, end: 20050328
  2. ADALAT [Concomitant]
     Route: 048
     Dates: start: 19950101, end: 20050331
  3. DAONIL [Concomitant]
     Indication: DIABETES MELLITUS
     Route: 048
     Dates: start: 19950101
  4. METFORAL [Concomitant]
     Indication: DIABETES MELLITUS
     Route: 048
     Dates: start: 19950101
  5. TRIVASTAL [Concomitant]
     Route: 048
  6. TRUSOPT [Concomitant]
     Indication: GLAUCOMA
  7. XALATAN [Concomitant]
     Indication: GLAUCOMA
  8. CARPILO [Concomitant]
     Indication: GLAUCOMA
     Dosage: DOSE: UNK

REACTIONS (3)
  - ANGINA PECTORIS [None]
  - CHEST PAIN [None]
  - DYSPNOEA [None]
